FAERS Safety Report 11271254 (Version 1)
Quarter: 2015Q3

REPORT INFORMATION
  Report Type: Spontaneous
  Country: BR (occurrence: BR)
  Receive Date: 20150714
  Receipt Date: 20150714
  Transmission Date: 20151125
  Serious: Yes (Other)
  Sender: FDA-Public Use
  Company Number: ALCN2015BR004371

PATIENT
  Age: 15 Year
  Sex: Male
  Weight: 85 kg

DRUGS (2)
  1. DUOTRAV [BAC] [Suspect]
     Active Substance: TIMOLOL\TRAVOPROST
     Indication: INTRAOCULAR PRESSURE INCREASED
  2. DUOTRAV [BAC] [Suspect]
     Active Substance: TIMOLOL\TRAVOPROST
     Indication: KERATOCONUS
     Dosage: 1 DF, UNK
     Route: 047
     Dates: start: 201408, end: 2015

REACTIONS (2)
  - Blindness unilateral [Unknown]
  - Glaucoma [Unknown]

NARRATIVE: CASE EVENT DATE: 201410
